FAERS Safety Report 24847588 (Version 1)
Quarter: 2025Q1

REPORT INFORMATION
  Report Type: Spontaneous
  Country: US (occurrence: US)
  Receive Date: 20250116
  Receipt Date: 20250116
  Transmission Date: 20250409
  Serious: Yes (Life-Threatening, Hospitalization, Other)
  Sender: Unknown Manufacturer
  Company Number: US-862174955-ML2025-00163

PATIENT
  Age: 41 Year
  Sex: Female

DRUGS (1)
  1. SUCCINYLCHOLINE CHLORIDE [Suspect]
     Active Substance: SUCCINYLCHOLINE CHLORIDE
     Indication: Anaesthesia

REACTIONS (2)
  - Myasthenia gravis [Recovered/Resolved]
  - Myasthenia gravis crisis [Recovered/Resolved]
